FAERS Safety Report 5420901-5 (Version None)
Quarter: 2007Q3

REPORT INFORMATION
  Report Type: 
  Country: None (occurrence: None)
  Receive Date: 20070821
  Receipt Date: 20070810
  Transmission Date: 20080115
  Serious: Yes (Hospitalization)
  Sender: FDA-Public Use
  Company Number: DE-JNJFOC-20070802044

PATIENT
  Sex: Female
  Weight: 3.49 kg

DRUGS (4)
  1. GYNO-PEVARYL [Suspect]
     Indication: DRUG EXPOSURE DURING PREGNANCY
  2. FERROUS SULFATE TAB [Concomitant]
  3. VAGI-C [Concomitant]
  4. FOLICACIDHODINE [Concomitant]

REACTIONS (2)
  - DRUG EXPOSURE DURING PREGNANCY [None]
  - ILEUS [None]
